FAERS Safety Report 21681675 (Version 1)
Quarter: 2022Q4

REPORT INFORMATION
  Report Type: Spontaneous
  Country: US (occurrence: US)
  Receive Date: 20221205
  Receipt Date: 20221205
  Transmission Date: 20230112
  Serious: No
  Sender: FDA-Public Use
  Company Number: US-RECORDATI-2022006347

PATIENT

DRUGS (2)
  1. ISTURISA [Suspect]
     Active Substance: OSILODROSTAT PHOSPHATE
     Indication: Pituitary-dependent Cushing^s syndrome
     Dosage: UNK
     Route: 048
     Dates: start: 2021
  2. ISTURISA [Suspect]
     Active Substance: OSILODROSTAT PHOSPHATE
     Dosage: UNK
     Route: 048
     Dates: start: 202203

REACTIONS (4)
  - Bone disorder [Unknown]
  - Pain in extremity [Not Recovered/Not Resolved]
  - Emotional disorder [Unknown]
  - Therapy interrupted [Recovered/Resolved]

NARRATIVE: CASE EVENT DATE: 20220101
